FAERS Safety Report 4879327-5 (Version None)
Quarter: 2006Q1

REPORT INFORMATION
  Report Type: 
  Country: None (occurrence: None)
  Receive Date: 20060112
  Receipt Date: 20050511
  Transmission Date: 20060701
  Serious: Yes (Hospitalization)
  Sender: FDA-Public Use
  Company Number: US-MERCK-0505USA01563

PATIENT
  Age: 44 Year
  Sex: Female

DRUGS (7)
  1. ZOCOR [Suspect]
     Indication: BLOOD CHOLESTEROL INCREASED
     Route: 048
     Dates: start: 20040201, end: 20040331
  2. ZOCOR [Suspect]
     Indication: LOW DENSITY LIPOPROTEIN INCREASED
     Route: 048
     Dates: start: 20040201, end: 20040331
  3. DIOVAN [Concomitant]
     Route: 065
     Dates: end: 20040301
  4. DIOVAN [Concomitant]
     Route: 065
     Dates: start: 20040401
  5. PREMARIN [Concomitant]
     Route: 065
  6. NEURONTIN [Concomitant]
     Route: 065
  7. LORTAB [Concomitant]
     Route: 065

REACTIONS (11)
  - ANAEMIA [None]
  - BLOOD THYROID STIMULATING HORMONE DECREASED [None]
  - CORONARY ARTERY DISEASE [None]
  - HYPERPHOSPHATAEMIA [None]
  - HYPERTENSION [None]
  - HYPOCALCAEMIA [None]
  - HYPONATRAEMIA [None]
  - HYPOTENSION [None]
  - MENTAL STATUS CHANGES [None]
  - RENAL FAILURE ACUTE [None]
  - RHABDOMYOLYSIS [None]
